FAERS Safety Report 9687814 (Version 1)
Quarter: 2013Q4

REPORT INFORMATION
  Report Type: Spontaneous
  Country: US (occurrence: US)
  Receive Date: 20131114
  Receipt Date: 20131114
  Transmission Date: 20140711
  Serious: No
  Sender: FDA-Public Use
  Company Number: US-009507513-1310USA013989

PATIENT
  Age: 26 Year
  Sex: Female
  Weight: 97.52 kg

DRUGS (1)
  1. IMPLANON [Suspect]
     Indication: CONTRACEPTION
     Dosage: 1 ROD, UNK
     Route: 059
     Dates: start: 2008

REACTIONS (3)
  - Weight increased [Unknown]
  - Medical device complication [Unknown]
  - Incorrect drug administration duration [Not Recovered/Not Resolved]
